FAERS Safety Report 8657903 (Version 2)
Quarter: 2012Q4

REPORT INFORMATION
  Report Type: 
  Country: US (occurrence: US)
  Receive Date: 20120710
  Receipt Date: 20121102
  Transmission Date: 20130627
  Serious: No
  Sender: FDA-Public Use
  Company Number: US-PFIZER INC-2012161778

PATIENT
  Age: 56 Year
  Sex: Female
  Weight: 70.3 kg

DRUGS (7)
  1. EFFEXOR [Suspect]
     Indication: MAJOR DEPRESSION
     Dosage: 175 mg, daily in the morning
     Route: 048
  2. EFFEXOR [Suspect]
     Dosage: 225 mg, daily in the morning
     Route: 048
  3. PROZAC [Concomitant]
     Dosage: UNK
  4. LORTAB [Concomitant]
     Indication: FIBROMYALGIA
     Dosage: 10/500 mg, as needed
     Route: 048
  5. LORTAB [Concomitant]
     Indication: OSTEOARTHRITIS
  6. LORTAB [Concomitant]
     Indication: PAIN RELIEF
  7. XANAX [Concomitant]
     Indication: SLEEP PROBLEM
     Dosage: 1 mg, as needed

REACTIONS (7)
  - Inappropriate schedule of drug administration [Unknown]
  - Drug dose omission [Unknown]
  - Hypersensitivity [Recovered/Resolved]
  - Fibromyalgia [Unknown]
  - Therapeutic response unexpected [Unknown]
  - Dizziness [Recovered/Resolved]
  - Tinnitus [Recovered/Resolved]
